FAERS Safety Report 8530254-1 (Version None)
Quarter: 2012Q3

REPORT INFORMATION
  Report Type: 
  Country: None (occurrence: None)
  Receive Date: 20120723
  Receipt Date: 20120717
  Transmission Date: 20120928
  Serious: Yes (Other)
  Sender: FDA-Public Use
  Company Number: US-PFIZER INC-2012173622

PATIENT
  Sex: Male

DRUGS (3)
  1. CALAN [Suspect]
     Dosage: UNK
  2. ALDACTAZIDE [Suspect]
     Dosage: UNK
  3. CALAN SR [Suspect]
     Dosage: UNK

REACTIONS (1)
  - CARDIAC DISORDER [None]
